FAERS Safety Report 9384119 (Version 4)
Quarter: 2013Q3

REPORT INFORMATION
  Report Type: Spontaneous
  Country: JP (occurrence: JP)
  Receive Date: 20130705
  Receipt Date: 20130806
  Transmission Date: 20140515
  Serious: Yes (Other)
  Sender: FDA-Public Use
  Company Number: JP-JNJFOC-20130619739

PATIENT
  Age: 87 Year
  Sex: Male
  Weight: 56 kg

DRUGS (28)
  1. REMICADE [Suspect]
     Indication: PSORIASIS
     Dosage: FIFTH DOSE
     Route: 042
     Dates: start: 20120801
  2. REMICADE [Suspect]
     Indication: PSORIASIS
     Route: 042
     Dates: start: 20120606
  3. REMICADE [Suspect]
     Indication: PSORIASIS
     Route: 042
     Dates: start: 20120229
  4. NEORAL [Suspect]
     Indication: PRURITUS
     Dosage: AFTER MEALS IN THE MORNING
     Route: 048
  5. NEORAL [Suspect]
     Indication: PRURITUS
     Route: 048
     Dates: end: 20120919
  6. ARICEPT [Concomitant]
     Route: 048
  7. RYTHMODAN [Concomitant]
     Route: 048
  8. PERSANTIN [Concomitant]
     Route: 048
  9. MUCOSTA [Concomitant]
     Route: 048
  10. ALLELOCK [Concomitant]
     Dosage: AFTER MEALS (IN THE MORNING AND IN THE EVENING); TOTAL DAILY DOSE: 10 MG
     Route: 048
  11. ATARAX- P [Concomitant]
     Route: 048
  12. ANTEBATE [Concomitant]
     Route: 065
  13. ECLAR [Concomitant]
     Route: 065
  14. ALLEGRA [Concomitant]
     Dosage: AFTER MEALS (IN THE MORNING AND IN THE EVENING); TOTAL DAILY DOSE: 120 MG
     Route: 048
  15. NIPOLAZIN [Concomitant]
     Dosage: AFTER MEALS (IN THE MORNING AND IN THE EVENING); TOTAL DAILY DOSE: 6 MG
     Route: 048
  16. OXAROL [Concomitant]
     Indication: ERYTHEMA
     Route: 065
  17. FULMETA [Concomitant]
     Indication: ERYTHEMA
     Route: 065
  18. NERISONA [Concomitant]
     Dosage: INDICATION: ^FOR THE HEAD^
     Route: 065
  19. ZYRTEC [Concomitant]
     Dosage: AFTER MEALS (IN THE MORNING AND EVENING); TOTAL DAILY DOSE: 10DF
     Route: 048
  20. ADALAT L [Concomitant]
     Dosage: AFTER MEALS (IN THE MORNING)
     Route: 048
  21. ADALAT L [Concomitant]
     Route: 048
  22. CLARITH [Concomitant]
     Dosage: AFTER MEALS, IN THE MORNING AND EVENING; TOTAL DAILY DOSE: 400 MG
     Route: 048
  23. TALION [Concomitant]
     Dosage: AFTER MEALS (IN THE MORNING)
     Route: 048
  24. PREDONINE [Concomitant]
     Dosage: AFTER MEALS (IN THE MORNING)
     Route: 048
  25. MEIACT [Concomitant]
     Route: 048
  26. NIZORAL [Concomitant]
     Route: 065
  27. DIFLAL [Concomitant]
     Route: 065
  28. RESTAMIN [Concomitant]
     Route: 065

REACTIONS (4)
  - Pneumonia cryptococcal [Recovering/Resolving]
  - Hepatic cyst [Unknown]
  - Renal cyst [Unknown]
  - Psoriasis [Unknown]
